FAERS Safety Report 24701455 (Version 1)
Quarter: 2024Q4

REPORT INFORMATION
  Report Type: Spontaneous
  Country: FR (occurrence: FR)
  Receive Date: 20241205
  Receipt Date: 20241205
  Transmission Date: 20250115
  Serious: Yes (Hospitalization, Other)
  Sender: GLAXOSMITHKLINE
  Company Number: None

PATIENT

DRUGS (1)
  1. LAMOTRIGINE [Suspect]
     Active Substance: LAMOTRIGINE
     Indication: Anxiety disorder
     Dosage: 25 MG
     Route: 048
     Dates: start: 20240208, end: 20240313

REACTIONS (1)
  - Drug reaction with eosinophilia and systemic symptoms [Recovered/Resolved with Sequelae]

NARRATIVE: CASE EVENT DATE: 20240310
